FAERS Safety Report 18011824 (Version 2)
Quarter: 2020Q3

REPORT INFORMATION
  Report Type: Report from Study
  Country: US (occurrence: US)
  Receive Date: 20200713
  Receipt Date: 20200717
  Transmission Date: 20201103
  Serious: Yes (Other)
  Sender: FDA-Public Use
  Company Number: US-AMGEN-USASL2020108903

PATIENT
  Age: 61 Year
  Sex: Male

DRUGS (1)
  1. REPATHA [Suspect]
     Active Substance: EVOLOCUMAB
     Indication: HYPERCHOLESTEROLAEMIA
     Dosage: 140 MILLIGRAM, Q2WK
     Route: 065
     Dates: start: 20200603

REACTIONS (16)
  - Neuropathy peripheral [Unknown]
  - Limb discomfort [Unknown]
  - Swelling face [Unknown]
  - Pain in extremity [Unknown]
  - Hyperaesthesia [Unknown]
  - Dysgeusia [Unknown]
  - Arthralgia [Unknown]
  - Pharyngeal hypoaesthesia [Unknown]
  - Contusion [Unknown]
  - Back pain [Unknown]
  - Asthenia [Unknown]
  - Injection site erythema [Unknown]
  - Musculoskeletal discomfort [Unknown]
  - Pharyngeal swelling [Unknown]
  - Pain [Unknown]
  - Headache [Unknown]

NARRATIVE: CASE EVENT DATE: 20200603
